FAERS Safety Report 25530747 (Version 1)
Quarter: 2025Q3

REPORT INFORMATION
  Report Type: Spontaneous
  Country: US (occurrence: US)
  Receive Date: 20250708
  Receipt Date: 20250708
  Transmission Date: 20251021
  Serious: No
  Sender: MYLAN
  Company Number: US-MYLANLABS-2025M1055252

PATIENT
  Sex: Female
  Weight: 63.5 kg

DRUGS (4)
  1. AMLODIPINE BESYLATE AND VALSARTAN [Suspect]
     Active Substance: AMLODIPINE BESYLATE\VALSARTAN
     Indication: Hypertension
  2. AMLODIPINE BESYLATE AND VALSARTAN [Suspect]
     Active Substance: AMLODIPINE BESYLATE\VALSARTAN
     Route: 048
  3. AMLODIPINE BESYLATE AND VALSARTAN [Suspect]
     Active Substance: AMLODIPINE BESYLATE\VALSARTAN
     Route: 048
  4. AMLODIPINE BESYLATE AND VALSARTAN [Suspect]
     Active Substance: AMLODIPINE BESYLATE\VALSARTAN

REACTIONS (1)
  - Skin discolouration [Not Recovered/Not Resolved]

NARRATIVE: CASE EVENT DATE: 20250101
